FAERS Safety Report 8923446 (Version 1)
Quarter: 2012Q4

REPORT INFORMATION
  Report Type: Spontaneous
  Country: US (occurrence: None)
  Receive Date: 20121115
  Receipt Date: 20121115
  Transmission Date: 20130627
  Serious: No
  Sender: FDA-Public Use
  Company Number: None

PATIENT
  Age: 51 Year
  Sex: Male

DRUGS (1)
  1. ZOLOFT [Suspect]
     Dates: start: 20110604, end: 20110704

REACTIONS (16)
  - Hypercholesterolaemia [None]
  - Vitamin D deficiency [None]
  - Drug-induced liver injury [None]
  - Hepatic steatosis [None]
  - Pancreatic atrophy [None]
  - Nausea [None]
  - Vomiting [None]
  - Abdominal discomfort [None]
  - Aspartate aminotransferase increased [None]
  - Alanine aminotransferase increased [None]
  - Blood alkaline phosphatase increased [None]
  - Pruritus [None]
  - Chromaturia [None]
  - Faeces pale [None]
  - Gallbladder polyp [None]
  - Blood bilirubin increased [None]
